FAERS Safety Report 13395631 (Version 1)
Quarter: 2017Q2

REPORT INFORMATION
  Report Type: Spontaneous
  Country: US (occurrence: US)
  Receive Date: 20170402
  Receipt Date: 20170402
  Transmission Date: 20170830
  Serious: Yes (Disabling)
  Sender: FDA-Public Use
  Company Number: None

PATIENT
  Sex: Male
  Weight: 101.2 kg

DRUGS (11)
  1. INSULIN PUMP AND SENSOR [Concomitant]
  2. BACLOFEN. [Concomitant]
     Active Substance: BACLOFEN
  3. ALPHA LIPOIC ACID [Concomitant]
     Active Substance: .ALPHA.-LIPOIC ACID
  4. GABAPENTINE [Concomitant]
     Active Substance: GABAPENTIN
  5. DULOXETINE. [Concomitant]
     Active Substance: DULOXETINE
  6. ASTOROVASTATIN [Concomitant]
  7. MODAFINIL. [Concomitant]
     Active Substance: MODAFINIL
  8. STELLARA [Concomitant]
  9. HUMIRA [Suspect]
     Active Substance: ADALIMUMAB
  10. HUMALOG [Concomitant]
     Active Substance: INSULIN LISPRO
  11. LISINOPRIL. [Concomitant]
     Active Substance: LISINOPRIL

REACTIONS (4)
  - Type 1 diabetes mellitus [None]
  - Demyelination [None]
  - Intervertebral disc protrusion [None]
  - Diabetic complication [None]
